FAERS Safety Report 19112327 (Version 1)
Quarter: 2021Q2

REPORT INFORMATION
  Report Type: Spontaneous
  Country: US (occurrence: US)
  Receive Date: 20210409
  Receipt Date: 20210409
  Transmission Date: 20210717
  Serious: Yes (Life-Threatening, Hospitalization)
  Sender: FDA-Public Use
  Company Number: None

PATIENT
  Age: 61 Year
  Sex: Male
  Weight: 95 kg

DRUGS (1)
  1. DENOSUMAB (DENOSUMAB 120MG/1.7ML INJ) [Suspect]
     Active Substance: DENOSUMAB
     Indication: HYPERCALCAEMIA
     Route: 058
     Dates: start: 20200817, end: 20200817

REACTIONS (4)
  - Blood phosphorus decreased [None]
  - Pain in extremity [None]
  - Hypocalcaemia [None]
  - Fatigue [None]

NARRATIVE: CASE EVENT DATE: 20200831
